FAERS Safety Report 14557668 (Version 2)
Quarter: 2018Q2

REPORT INFORMATION
  Report Type: Spontaneous
  Country: US (occurrence: US)
  Receive Date: 20180221
  Receipt Date: 20180510
  Transmission Date: 20180711
  Serious: Yes (Hospitalization)
  Sender: FDA-Public Use
  Company Number: US-BAYER-2018-028277

PATIENT
  Age: 22 Year
  Sex: Male

DRUGS (1)
  1. KOGENATE FS [Suspect]
     Active Substance: ANTIHEMOPHILIC FACTOR, HUMAN RECOMBINANT
     Indication: FACTOR VIII DEFICIENCY
     Dosage: 2000 U, PRN, DAILY AS NEEDED
     Route: 042
     Dates: start: 20170213

REACTIONS (1)
  - Ileostomy closure [Recovered/Resolved]

NARRATIVE: CASE EVENT DATE: 20180205
